FAERS Safety Report 9324521 (Version 1)
Quarter: 2013Q2

REPORT INFORMATION
  Report Type: Spontaneous
  Country: US (occurrence: None)
  Receive Date: 20130529
  Receipt Date: 20130529
  Transmission Date: 20140414
  Serious: Yes (Other)
  Sender: FDA-Public Use
  Company Number: 001541431A

PATIENT
  Age: 23 Year
  Sex: Female

DRUGS (7)
  1. PROACTIV SOLUTION RENEWING CLEANSER [Suspect]
     Indication: ACNE
     Dosage: ONCE SPOT DOSE DERMAL
     Dates: start: 20130426
  2. SIMVASTATIN [Concomitant]
  3. ATENOLOL [Concomitant]
  4. ENALAPRIL [Concomitant]
  5. OMEGA 3 [Concomitant]
  6. BENADRYL [Concomitant]
  7. EPIPEN [Concomitant]

REACTIONS (3)
  - Skin burning sensation [None]
  - Urticaria [None]
  - Dyspnoea [None]
